FAERS Safety Report 10157590 (Version 1)
Quarter: 2014Q2

REPORT INFORMATION
  Report Type: Spontaneous
  Country: IT (occurrence: IT)
  Receive Date: 20140507
  Receipt Date: 20140507
  Transmission Date: 20141212
  Serious: Yes (Hospitalization)
  Sender: FDA-Public Use
  Company Number: IT-ACTAVIS-2014-09100

PATIENT
  Age: 73 Year
  Sex: Male

DRUGS (3)
  1. OXALIPLATIN (UNKNOWN) [Suspect]
     Indication: COLON CANCER METASTATIC
     Dosage: 150 MG, CYCLICAL
     Route: 042
     Dates: start: 20131218, end: 20140305
  2. AVASTIN                            /00848101/ [Suspect]
     Indication: COLON CANCER METASTATIC
     Dosage: 360 MG, CYCLICAL
     Route: 042
     Dates: start: 20131218, end: 20140305
  3. FLUOROURACIL                       /00098802/ [Suspect]
     Indication: COLON CANCER METASTATIC
     Dosage: 3500 MG, CYCLICAL
     Route: 042
     Dates: start: 20131218, end: 20140305

REACTIONS (1)
  - Gastrointestinal hypomotility [Unknown]
